FAERS Safety Report 9235993 (Version 3)
Quarter: 2013Q2

REPORT INFORMATION
  Report Type: Spontaneous
  Country: JP (occurrence: JP)
  Receive Date: 20130417
  Receipt Date: 20130516
  Transmission Date: 20140414
  Serious: Yes (Hospitalization, Other)
  Sender: FDA-Public Use
  Company Number: JP-BRISTOL-MYERS SQUIBB COMPANY-18792614

PATIENT
  Age: 57 Year
  Sex: Male
  Weight: 52 kg

DRUGS (7)
  1. MAGLAX [Concomitant]
     Indication: CONSTIPATION
     Route: 048
     Dates: start: 20120326
  2. ERBITUX SOLN FOR INF 5MG/ML [Suspect]
     Indication: HYPOPHARYNGEAL CANCER
     Dosage: 18-18FEB13-600MG?25-25FEB13-370MG?7-7MAR13-370MG
     Route: 041
     Dates: start: 20130218, end: 20130307
  3. MINOCYCLINE HCL (WATSON LABORATORIES) [Suspect]
     Indication: PROPHYLAXIS
     Route: 048
     Dates: start: 20130218, end: 20130304
  4. CALONAL [Concomitant]
     Indication: ANALGESIC THERAPY
     Dosage: TABS
     Route: 048
     Dates: start: 20120326
  5. CEFEPIME FOR INJ [Concomitant]
     Indication: INFECTION PROPHYLAXIS
     Dates: start: 20130304
  6. OXYCONTIN [Concomitant]
     Indication: ANALGESIC THERAPY
     Dosage: TABS
     Route: 048
     Dates: start: 20120326
  7. MAGLAX [Concomitant]
     Indication: DISBACTERIOSIS
     Route: 048
     Dates: start: 20120326

REACTIONS (10)
  - Pyrexia [Recovering/Resolving]
  - Cardiac failure [Recovered/Resolved]
  - Platelet count decreased [Recovered/Resolved]
  - Liver function test abnormal [Recovered/Resolved]
  - Pharyngeal inflammation [Recovered/Resolved]
  - Alanine aminotransferase increased [None]
  - Aspartate aminotransferase increased [None]
  - Haemoglobin decreased [None]
  - Haematocrit decreased [None]
  - Blood sodium decreased [None]
